FAERS Safety Report 23137073 (Version 2)
Quarter: 2024Q1

REPORT INFORMATION
  Report Type: Spontaneous
  Country: US (occurrence: None)
  Receive Date: 20231102
  Receipt Date: 20240112
  Transmission Date: 20240409
  Serious: Yes (Other)
  Sender: FDA-Public Use
  Company Number: 2023A244116

PATIENT
  Age: 76 Year
  Sex: Female

DRUGS (1)
  1. BUDESONIDE\FORMOTEROL [Suspect]
     Active Substance: BUDESONIDE\FORMOTEROL
     Indication: Chronic obstructive pulmonary disease
     Dosage: 2 X DAILY
     Route: 055
     Dates: start: 2020

REACTIONS (9)
  - Blindness [Unknown]
  - Frustration tolerance decreased [Unknown]
  - Drug dose omission by device [Unknown]
  - Incorrect dose administered by device [Unknown]
  - Device use issue [Unknown]
  - Drug ineffective [Unknown]
  - Device defective [Unknown]
  - Wrong technique in device usage process [Unknown]
  - Device malfunction [Unknown]
